FAERS Safety Report 11024473 (Version 2)
Quarter: 2015Q2

REPORT INFORMATION
  Report Type: Spontaneous
  Country: MY (occurrence: MY)
  Receive Date: 20150414
  Receipt Date: 20150429
  Transmission Date: 20150821
  Serious: Yes (Hospitalization)
  Sender: FDA-Public Use
  Company Number: MY-AMGEN-MYSSP2015035792

PATIENT
  Age: 86 Year
  Sex: Female

DRUGS (2)
  1. PROLIA [Suspect]
     Active Substance: DENOSUMAB
     Indication: OSTEOPOROSIS POSTMENOPAUSAL
     Dosage: 60 MG, UNK
     Route: 058
     Dates: start: 20150212
  2. CALCIUM + VITAMIN D                /00944201/ [Suspect]
     Active Substance: CALCIUM\VITAMIN D
     Indication: PRODUCT USED FOR UNKNOWN INDICATION
     Dosage: 500 MG, QD
     Route: 065

REACTIONS (5)
  - Asthenia [Unknown]
  - Injection site rash [Recovering/Resolving]
  - Injection site pruritus [Recovering/Resolving]
  - Hypocalcaemia [Recovering/Resolving]
  - Hyponatraemia [Recovering/Resolving]

NARRATIVE: CASE EVENT DATE: 20150228
